FAERS Safety Report 9183832 (Version 1)
Quarter: 2013Q1

REPORT INFORMATION
  Report Type: Spontaneous
  Country: US (occurrence: US)
  Receive Date: 20130322
  Receipt Date: 20130322
  Transmission Date: 20140127
  Serious: No
  Sender: FDA-Public Use
  Company Number: US-BRISTOL-MYERS SQUIBB COMPANY-16630683

PATIENT
  Age: 73 Year
  Sex: Male
  Weight: 74.37 kg

DRUGS (2)
  1. ERBITUX [Suspect]
     Indication: COLORECTAL CANCER
     Dates: start: 20110511
  2. CAMPTOSAR [Suspect]
     Dosage: 1 DOSAGE FORM: 4WEEKS ON AND 2WEEKS OFF

REACTIONS (3)
  - Rash [Recovering/Resolving]
  - Alopecia [Recovering/Resolving]
  - Asthenia [Unknown]
